FAERS Safety Report 17120594 (Version 2)
Quarter: 2020Q1

REPORT INFORMATION
  Report Type: Spontaneous
  Country: BR (occurrence: BR)
  Receive Date: 20191206
  Receipt Date: 20200110
  Transmission Date: 20200409
  Serious: Yes (Other)
  Sender: FDA-Public Use
  Company Number: BR-ASTRAZENECA-2019SF73167

PATIENT
  Age: 67 Year
  Sex: Female

DRUGS (6)
  1. PEMETREXED. [Concomitant]
     Active Substance: PEMETREXED
     Indication: CHEMOTHERAPY
  2. PLACEBO/PENBROLIZUMAB [Concomitant]
  3. IRESSA [Suspect]
     Active Substance: GEFITINIB
     Indication: LUNG ADENOCARCINOMA STAGE IV
     Route: 048
     Dates: start: 201808, end: 2019
  4. TAGRISSO [Suspect]
     Active Substance: OSIMERTINIB
     Indication: LUNG ADENOCARCINOMA
     Route: 048
     Dates: start: 20190318
  5. CLEXANE [Concomitant]
     Active Substance: ENOXAPARIN SODIUM
  6. CARBOPLATIN. [Concomitant]
     Active Substance: CARBOPLATIN

REACTIONS (6)
  - Acquired gene mutation [Unknown]
  - Malignant neoplasm progression [Unknown]
  - Thrombophlebitis superficial [Recovered/Resolved]
  - Thrombophlebitis superficial [Recovered/Resolved]
  - Thrombophlebitis [Recovered/Resolved]
  - Hepatic mass [Unknown]

NARRATIVE: CASE EVENT DATE: 201902
